FAERS Safety Report 13187800 (Version 1)
Quarter: 2017Q1

REPORT INFORMATION
  Report Type: Spontaneous
  Country: IN (occurrence: IN)
  Receive Date: 20170206
  Receipt Date: 20170206
  Transmission Date: 20170428
  Serious: Yes (Death, Life-Threatening)
  Sender: FDA-Public Use
  Company Number: IN-TORRENT-00000714

PATIENT
  Age: 21 Year
  Sex: Male

DRUGS (4)
  1. CARBAMAZEPINE. [Suspect]
     Active Substance: CARBAMAZEPINE
  2. CLONAZEPAM. [Concomitant]
     Active Substance: CLONAZEPAM
  3. LEVETIRACETAM. [Concomitant]
     Active Substance: LEVETIRACETAM
  4. NORFLOXACIN [Concomitant]
     Active Substance: NORFLOXACIN

REACTIONS (2)
  - Toxic epidermal necrolysis [Fatal]
  - Mucocutaneous candidiasis [Unknown]
